FAERS Safety Report 4960241-1 (Version None)
Quarter: 2006Q1

REPORT INFORMATION
  Report Type: 
  Country: None (occurrence: None)
  Receive Date: 20060328
  Receipt Date: 20060320
  Transmission Date: 20060701
  Serious: Yes (Hospitalization)
  Sender: FDA-Public Use
  Company Number: 2006038762

PATIENT
  Age: 77 Year
  Sex: Female

DRUGS (3)
  1. LIPITOR [Suspect]
     Indication: BLOOD CHOLESTEROL INCREASED
  2. DETROL LA [Suspect]
     Indication: HYPERTONIC BLADDER
     Dosage: 4 MG (4 MG, 1 IN 1 D), ORAL
     Route: 048
  3. ACTOS [Suspect]
     Indication: DIABETES MELLITUS

REACTIONS (12)
  - BACK DISORDER [None]
  - DIABETES MELLITUS [None]
  - DIFFICULTY IN WALKING [None]
  - DRUG EFFECT DECREASED [None]
  - FLUID RETENTION [None]
  - HYPERTENSION [None]
  - HYPERTONIC BLADDER [None]
  - MEMORY IMPAIRMENT [None]
  - MOBILITY DECREASED [None]
  - OSTEOARTHRITIS [None]
  - OSTEOPOROSIS [None]
  - URINARY INCONTINENCE [None]
